FAERS Safety Report 15748695 (Version 1)
Quarter: 2018Q4

REPORT INFORMATION
  Report Type: Spontaneous
  Country: US (occurrence: US)
  Receive Date: 20181221
  Receipt Date: 20181221
  Transmission Date: 20190205
  Serious: No
  Sender: FDA-Public Use
  Company Number: US-AMGEN-USASP2018181600

PATIENT
  Sex: Female

DRUGS (3)
  1. PREDNISONE. [Concomitant]
     Active Substance: PREDNISONE
     Dosage: 5 MG, UNK
     Route: 065
  2. ENBREL [Suspect]
     Active Substance: ETANERCEPT
     Indication: PRODUCT USED FOR UNKNOWN INDICATION
     Dosage: 50 MG, QWK
     Route: 058
     Dates: start: 20180102
  3. HYDROCORTISON [Concomitant]
     Active Substance: HYDROCORTISONE
     Dosage: 20 MG, UNK
     Route: 065

REACTIONS (1)
  - Musculoskeletal disorder [Unknown]

NARRATIVE: CASE EVENT DATE: 2018
